FAERS Safety Report 10687677 (Version 1)
Quarter: 2014Q4

REPORT INFORMATION
  Report Type: Spontaneous
  Country: US (occurrence: None)
  Receive Date: 20141231
  Receipt Date: 20141231
  Transmission Date: 20150529
  Serious: Yes (Other)
  Sender: FDA-Public Use
  Company Number: None

PATIENT
  Age: 48 Year
  Sex: Male
  Weight: 86.18 kg

DRUGS (2)
  1. CHLORAPREP [Suspect]
     Active Substance: CHLORHEXIDINE GLUCONATE\ISOPROPYL ALCOHOL
     Indication: PREOPERATIVE CARE
     Dosage: APPLIED TO A SURFACE, USUALLY THE SKIN
     Dates: start: 20141223
  2. CHLORAPREP [Suspect]
     Active Substance: CHLORHEXIDINE GLUCONATE\ISOPROPYL ALCOHOL
     Dosage: APPLIED TO A SURFACE, USUALLY THE SKIN
     Dates: start: 20141223

REACTIONS (6)
  - Application site erythema [None]
  - Application site vesicles [None]
  - Swelling face [None]
  - Application site pruritus [None]
  - Urticaria [None]
  - Eye swelling [None]

NARRATIVE: CASE EVENT DATE: 20141225
